FAERS Safety Report 11803703 (Version 3)
Quarter: 2016Q1

REPORT INFORMATION
  Report Type: Spontaneous
  Country: US (occurrence: US)
  Receive Date: 20151204
  Receipt Date: 20160322
  Transmission Date: 20160525
  Serious: Yes (Hospitalization)
  Sender: FDA-Public Use
  Company Number: US-UNITED THERAPEUTICS-UNT-2015-015169

PATIENT
  Age: 53 Year
  Sex: Female
  Weight: 127.44 kg

DRUGS (5)
  1. OPSUMIT [Concomitant]
     Active Substance: MACITENTAN
     Indication: PRODUCT USED FOR UNKNOWN INDICATION
  2. REMODULIN [Suspect]
     Active Substance: TREPROSTINIL
     Dosage: 0.068 ?G/KG, CONTINUING
     Route: 041
  3. REVATIO [Concomitant]
     Active Substance: SILDENAFIL CITRATE
     Indication: PRODUCT USED FOR UNKNOWN INDICATION
  4. REMODULIN [Suspect]
     Active Substance: TREPROSTINIL
     Indication: PULMONARY ARTERIAL HYPERTENSION
     Dosage: 0.078 ?G/KG, CONTINUING
     Route: 041
     Dates: start: 20140407
  5. REMODULIN [Suspect]
     Active Substance: TREPROSTINIL
     Dosage: UNK

REACTIONS (6)
  - Renal failure [Unknown]
  - Cardiac failure [Unknown]
  - Device dislocation [Unknown]
  - Anaemia [Unknown]
  - Drug dose omission [Unknown]
  - Pneumonia [Unknown]

NARRATIVE: CASE EVENT DATE: 20151028
